FAERS Safety Report 18631752 (Version 1)
Quarter: 2020Q4

REPORT INFORMATION
  Report Type: Spontaneous
  Country: FR (occurrence: FR)
  Receive Date: 20201218
  Receipt Date: 20201218
  Transmission Date: 20210114
  Serious: Yes (Hospitalization)
  Sender: FDA-Public Use
  Company Number: FR-ABBVIE-20K-056-3695050-00

PATIENT
  Age: 61 Year
  Sex: Male

DRUGS (1)
  1. KALETRA [Suspect]
     Active Substance: LOPINAVIR\RITONAVIR
     Indication: CORONAVIRUS INFECTION
     Route: 048
     Dates: start: 20200328, end: 20200403

REACTIONS (2)
  - Hepatocellular injury [Recovered/Resolved]
  - Off label use [Unknown]

NARRATIVE: CASE EVENT DATE: 20200328
